FAERS Safety Report 7338034-X (Version None)
Quarter: 2011Q1

REPORT INFORMATION
  Report Type: 
  Country: None (occurrence: None)
  Receive Date: 20110308
  Receipt Date: 20110222
  Transmission Date: 20110831
  Serious: Yes (Other)
  Sender: FDA-Public Use
  Company Number: PHHY2011CA14600

PATIENT
  Sex: Female

DRUGS (1)
  1. AREDIA [Suspect]
     Dosage: UNK
     Dates: start: 20000101, end: 20060101

REACTIONS (3)
  - OSTEONECROSIS [None]
  - LUNG DISORDER [None]
  - COUGH [None]
